FAERS Safety Report 4751704-2 (Version None)
Quarter: 2005Q3

REPORT INFORMATION
  Report Type: 
  Country: None (occurrence: None)
  Receive Date: 20050822
  Receipt Date: 20050804
  Transmission Date: 20060218
  Serious: Yes (Hospitalization)
  Sender: FDA-Public Use
  Company Number: DSA_26761_2005

PATIENT
  Age: 38 Year
  Sex: Female

DRUGS (3)
  1. LORAZEPAM [Suspect]
     Dosage: 5 MG ONCE PO
     Route: 048
     Dates: start: 20050711, end: 20050711
  2. SEROQUEL [Suspect]
     Dosage: 30000 MG ONCE PO
     Route: 048
     Dates: start: 20050711, end: 20050711
  3. TAXILAN [Suspect]
     Dosage: 5 TAB ONCE PO
     Route: 048
     Dates: start: 20050711, end: 20050711

REACTIONS (5)
  - INTENTIONAL MISUSE [None]
  - MIOSIS [None]
  - MULTIPLE DRUG OVERDOSE [None]
  - SOMNOLENCE [None]
  - SOPOR [None]
